FAERS Safety Report 10360971 (Version 1)
Quarter: 2014Q3

REPORT INFORMATION
  Report Type: Report from Study
  Country: US (occurrence: US)
  Receive Date: 20140804
  Receipt Date: 20140804
  Transmission Date: 20150326
  Serious: Yes (Life-Threatening, Hospitalization, Other)
  Sender: FDA-Public Use
  Company Number: US-BRISTOL-MYERS SQUIBB COMPANY-21265889

PATIENT
  Age: 76 Year
  Sex: Male

DRUGS (13)
  1. XARELTO [Concomitant]
     Active Substance: RIVAROXABAN
     Indication: ATRIAL FIBRILLATION
     Route: 048
  2. PLACEBO [Suspect]
     Active Substance: UNSPECIFIED INGREDIENT
     Indication: TYPE 2 DIABETES MELLITUS
     Dosage: INTERRUPTED ON 01JUL2014
     Route: 048
     Dates: start: 20140114
  3. CALCIUM CARBONATE+MAGNESIUM HYDROXIDE [Concomitant]
     Indication: GASTRITIS
     Route: 048
  4. PLAVIX [Concomitant]
     Active Substance: CLOPIDOGREL BISULFATE
     Indication: CORONARY ARTERY DISEASE
     Route: 048
  5. SIMVASTATIN. [Concomitant]
     Active Substance: SIMVASTATIN
     Route: 048
  6. HUMALOG [Concomitant]
     Active Substance: INSULIN LISPRO
     Dosage: 1DF:100 UNIT/ML
     Route: 058
  7. DIGOXIN. [Concomitant]
     Active Substance: DIGOXIN
     Indication: ATRIAL FIBRILLATION
     Route: 048
  8. METFORMIN [Concomitant]
     Active Substance: METFORMIN HYDROCHLORIDE
     Dosage: 1500 MG AND 3500 MG
     Route: 048
  9. CARVEDILOL. [Concomitant]
     Active Substance: CARVEDILOL
     Indication: HYPERTENSION
     Route: 048
  10. DAPAGLIFLOZIN [Suspect]
     Active Substance: DAPAGLIFLOZIN
     Indication: TYPE 2 DIABETES MELLITUS
     Dosage: RECENT DOSE:01JUL2014
     Route: 048
     Dates: start: 20140114
  11. LEVEMIR [Concomitant]
     Active Substance: INSULIN DETEMIR
     Dosage: 1DF:100 UNIT/ML
     Route: 058
  12. LASIX [Concomitant]
     Active Substance: FUROSEMIDE
     Indication: HYPERTENSION
     Route: 048
  13. VITAMIN B12 [Concomitant]
     Active Substance: CYANOCOBALAMIN
     Route: 048

REACTIONS (3)
  - Renal failure [Unknown]
  - Respiratory failure [Unknown]
  - Hyponatraemia [Not Recovered/Not Resolved]

NARRATIVE: CASE EVENT DATE: 20140701
